FAERS Safety Report 10060574 (Version 2)
Quarter: 2014Q2

REPORT INFORMATION
  Report Type: Spontaneous
  Country: BR (occurrence: BR)
  Receive Date: 20140404
  Receipt Date: 20140528
  Transmission Date: 20141212
  Serious: Yes (Hospitalization)
  Sender: FDA-Public Use
  Company Number: BR-DSJP-DSJ-2014-103047AA

PATIENT
  Sex: 0

DRUGS (3)
  1. BENICAR ANLO [Suspect]
     Indication: HYPERTENSION
     Dosage: 40/5MG, QD
     Route: 048
     Dates: start: 2009
  2. ALPRAZOLAM [Concomitant]
     Dosage: UNK
     Route: 065
  3. CITALOPRAM [Concomitant]
     Dosage: UNK
     Route: 065

REACTIONS (4)
  - Vascular operation [Unknown]
  - Depression [Recovering/Resolving]
  - Disorientation [Recovering/Resolving]
  - Weight decreased [Recovering/Resolving]
